FAERS Safety Report 9142105 (Version 3)
Quarter: 2013Q2

REPORT INFORMATION
  Report Type: Spontaneous
  Country: US (occurrence: US)
  Receive Date: 20130305
  Receipt Date: 20130408
  Transmission Date: 20140414
  Serious: Yes (Hospitalization)
  Sender: FDA-Public Use
  Company Number: US-AMGEN-USASP2013011461

PATIENT
  Age: 71 Year
  Sex: Male

DRUGS (1)
  1. ENBREL [Suspect]
     Indication: PSORIASIS
     Dosage: 50 MG, QWK
     Dates: start: 20050701, end: 20130216

REACTIONS (4)
  - Hypoglycaemia [Unknown]
  - Blister [Not Recovered/Not Resolved]
  - Local swelling [Not Recovered/Not Resolved]
  - Rash [Not Recovered/Not Resolved]
